FAERS Safety Report 20060971 (Version 1)
Quarter: 2021Q4

REPORT INFORMATION
  Report Type: Report from Study
  Country: KR (occurrence: KR)
  Receive Date: 20211112
  Receipt Date: 20211112
  Transmission Date: 20220303
  Serious: Yes (Other)
  Sender: FDA-Public Use
  Company Number: KR-AMGEN-KORCT2021171190

PATIENT
  Age: 48 Year
  Sex: Male

DRUGS (52)
  1. FILGRASTIM [Suspect]
     Active Substance: FILGRASTIM
     Indication: Product used for unknown indication
     Dosage: UNK
     Route: 065
     Dates: start: 20110406, end: 20110407
  2. DECITABINE [Concomitant]
     Active Substance: DECITABINE
     Indication: Product used for unknown indication
     Dosage: 20 UNK, QD
     Route: 065
     Dates: start: 20110208, end: 20110208
  3. DECITABINE [Concomitant]
     Active Substance: DECITABINE
     Dosage: 20 UNK, QD
     Route: 065
     Dates: start: 20110209, end: 20110209
  4. DECITABINE [Concomitant]
     Active Substance: DECITABINE
     Dosage: 20 UNK, QD
     Route: 065
     Dates: start: 20110210, end: 20110210
  5. DECITABINE [Concomitant]
     Active Substance: DECITABINE
     Dosage: 20 UNK, QD
     Route: 065
     Dates: start: 20110211, end: 20110211
  6. DECITABINE [Concomitant]
     Active Substance: DECITABINE
     Dosage: 20 UNK, QD
     Route: 065
     Dates: start: 20110212, end: 20110212
  7. DECITABINE [Concomitant]
     Active Substance: DECITABINE
     Dosage: 20 UNK, QD
     Route: 065
     Dates: start: 20110315, end: 20110315
  8. DECITABINE [Concomitant]
     Active Substance: DECITABINE
     Dosage: 20 UNK, QD
     Route: 065
     Dates: start: 20110316, end: 20110316
  9. DECITABINE [Concomitant]
     Active Substance: DECITABINE
     Dosage: 20 UNK, QD
     Route: 065
     Dates: start: 20110317, end: 20110317
  10. DECITABINE [Concomitant]
     Active Substance: DECITABINE
     Dosage: 20 UNK, QD
     Route: 065
     Dates: start: 20110318, end: 20110318
  11. DECITABINE [Concomitant]
     Active Substance: DECITABINE
     Dosage: 20 UNK, QD
     Route: 065
     Dates: start: 20110319, end: 20110319
  12. DECITABINE [Concomitant]
     Active Substance: DECITABINE
     Dosage: 20 UNK, QD
     Route: 065
     Dates: start: 20110319, end: 20110319
  13. ENZYMES [Concomitant]
     Indication: Product used for unknown indication
     Dosage: 108 MILLIGRAM
     Route: 065
     Dates: start: 20110421, end: 20110426
  14. ATROPINE [Concomitant]
     Active Substance: ATROPINE
     Indication: Product used for unknown indication
     Dosage: 0.5 MILLIGRAM
     Route: 065
     Dates: start: 20110426, end: 20110426
  15. CEFACLOR [Concomitant]
     Active Substance: CEFACLOR
     Dosage: 1500 MG
     Route: 065
     Dates: start: 20110414, end: 20110421
  16. CEFAZOLIN [Concomitant]
     Active Substance: CEFAZOLIN
     Dosage: 2 UNK
     Route: 065
     Dates: start: 20110412, end: 20110412
  17. CEFAZOLIN [Concomitant]
     Active Substance: CEFAZOLIN
     Dosage: 6 UNK
     Route: 065
     Dates: start: 20110412, end: 20110413
  18. CEFDITOREN [Concomitant]
     Active Substance: CEFDITOREN
     Indication: Product used for unknown indication
     Dosage: 300 MG
     Route: 065
     Dates: start: 20110421, end: 20110421
  19. CEFEPIME [Concomitant]
     Active Substance: CEFEPIME HYDROCHLORIDE
     Indication: Product used for unknown indication
     Dosage: 4 UNK
     Route: 065
  20. CEFTRIAXONE [Concomitant]
     Active Substance: CEFTRIAXONE
     Indication: Product used for unknown indication
     Dosage: 2 UNK
     Route: 065
  21. CHLORPHENIRAMINE MALEATE [Concomitant]
     Active Substance: CHLORPHENIRAMINE MALEATE
     Indication: Product used for unknown indication
     Dosage: UNK
     Route: 065
     Dates: start: 20110222, end: 20110222
  22. CHLORPHENIRAMINE MALEATE [Concomitant]
     Active Substance: CHLORPHENIRAMINE MALEATE
     Dosage: 4 MG
     Route: 065
     Dates: start: 20110406, end: 20110406
  23. FAT EMULSION NOS [Concomitant]
     Active Substance: EGG PHOSPHOLIPIDS\SAFFLOWER OIL\SOYBEAN OIL
     Indication: Product used for unknown indication
     Dosage: 500 UNK
     Route: 065
     Dates: start: 20110405, end: 20110405
  24. FAT EMULSION NOS [Concomitant]
     Active Substance: EGG PHOSPHOLIPIDS\SAFFLOWER OIL\SOYBEAN OIL
     Dosage: 500 UNK
     Route: 065
     Dates: start: 20110407, end: 20110407
  25. FLUCONAZOLE [Concomitant]
     Active Substance: FLUCONAZOLE
     Indication: Product used for unknown indication
     Dosage: 150 MG
     Route: 065
     Dates: start: 20110208, end: 20110215
  26. FLUCONAZOLE [Concomitant]
     Active Substance: FLUCONAZOLE
     Dosage: 150 MG
     Route: 065
     Dates: start: 20110315, end: 20110404
  27. ISEPAMICIN [Concomitant]
     Active Substance: ISEPAMICIN
     Indication: Product used for unknown indication
     Dosage: 400 MG
     Route: 065
     Dates: start: 20110407, end: 20110407
  28. ISEPAMICIN [Concomitant]
     Active Substance: ISEPAMICIN
     Dosage: 400 MG
     Route: 065
     Dates: start: 20110409, end: 20110410
  29. ISEPAMICIN [Concomitant]
     Active Substance: ISEPAMICIN
     Dosage: 800 MG
     Route: 065
     Dates: start: 20110408, end: 20110408
  30. LACTULOSE [Concomitant]
     Active Substance: LACTULOSE
     Indication: Product used for unknown indication
     Dosage: 30 UNK
     Route: 065
     Dates: start: 20110411, end: 20110411
  31. LACTULOSE [Concomitant]
     Active Substance: LACTULOSE
     Dosage: 45 UNK
     Route: 065
     Dates: start: 20110410, end: 20110410
  32. LACTULOSE [Concomitant]
     Active Substance: LACTULOSE
     Dosage: 60 UNK
     Route: 065
     Dates: start: 20110408, end: 20110408
  33. LEVOFLOXACIN [Concomitant]
     Active Substance: LEVOFLOXACIN
     Indication: Product used for unknown indication
     Dosage: 500 MG
     Route: 065
     Dates: start: 20110208, end: 20110404
  34. LIDOCAINE [Concomitant]
     Active Substance: LIDOCAINE
     Indication: Product used for unknown indication
     Dosage: 40 UNK
     Route: 065
     Dates: start: 20110426, end: 20110426
  35. MAGNESIUM HYDROXIDE [Concomitant]
     Active Substance: MAGNESIUM HYDROXIDE
     Indication: Product used for unknown indication
     Dosage: 500 MG
     Route: 065
     Dates: start: 20110408, end: 20110408
  36. MAGNESIUM HYDROXIDE [Concomitant]
     Active Substance: MAGNESIUM HYDROXIDE
     Dosage: 1500 MG
     Route: 065
     Dates: start: 20110208, end: 20110213
  37. MAGNESIUM HYDROXIDE [Concomitant]
     Active Substance: MAGNESIUM HYDROXIDE
     Dosage: 1500 MG
     Route: 065
     Dates: start: 20110315, end: 20110320
  38. MAGNESIUM HYDROXIDE [Concomitant]
     Active Substance: MAGNESIUM HYDROXIDE
     Dosage: 1500 MG
     Route: 065
     Dates: start: 20110408, end: 20110504
  39. MIDAZOLAM [Concomitant]
     Active Substance: MIDAZOLAM
     Indication: Product used for unknown indication
     Dosage: 5 MG
     Route: 065
     Dates: start: 20110426, end: 20110426
  40. MORPHINE [Concomitant]
     Active Substance: MORPHINE
     Indication: Product used for unknown indication
     Dosage: 20 MG
     Route: 065
     Dates: start: 20110409, end: 20110410
  41. MORPHINE [Concomitant]
     Active Substance: MORPHINE
     Dosage: 40 MG
     Route: 065
     Dates: start: 20110408, end: 20110408
  42. MOXIFLOXACIN [Concomitant]
     Active Substance: MOXIFLOXACIN
     Indication: Product used for unknown indication
     Dosage: 400 MG
     Route: 065
     Dates: start: 20110427, end: 20110604
  43. MUPIROCIN [Concomitant]
     Active Substance: MUPIROCIN
     Indication: Product used for unknown indication
     Dosage: 10 UNK
     Route: 065
     Dates: start: 20110406, end: 20110430
  44. NAFCILLIN [Concomitant]
     Active Substance: NAFCILLIN SODIUM
     Indication: Product used for unknown indication
     Dosage: 10 UNK
     Route: 065
     Dates: start: 20110411, end: 20110411
  45. ORNIDAZOLE [Concomitant]
     Active Substance: ORNIDAZOLE
     Indication: Product used for unknown indication
     Dosage: 1000 MG
     Route: 065
     Dates: start: 20110407, end: 20110410
  46. POVIDONE-IODINE [Concomitant]
     Active Substance: POVIDONE-IODINE
     Indication: Product used for unknown indication
     Dosage: 250 UNK
     Route: 065
     Dates: start: 20110408, end: 20110408
  47. ROXITHROMYCIN [Concomitant]
     Active Substance: ROXITHROMYCIN
     Dosage: 1500 MG
     Route: 065
     Dates: start: 20110422, end: 20110427
  48. SODIUM CHLORIDE [Concomitant]
     Active Substance: SODIUM CHLORIDE
     Indication: Product used for unknown indication
     Dosage: 1000 UNK
     Route: 065
     Dates: start: 20110405, end: 20110405
  49. TEICOPLANIN [Concomitant]
     Active Substance: TEICOPLANIN
     Indication: Product used for unknown indication
     Dosage: 400 MG
     Route: 065
     Dates: start: 20110407, end: 20110407
  50. TEICOPLANIN [Concomitant]
     Active Substance: TEICOPLANIN
     Dosage: 400 MG
     Route: 065
     Dates: start: 20110409, end: 20110410
  51. TEICOPLANIN [Concomitant]
     Active Substance: TEICOPLANIN
     Dosage: 800 MG
     Route: 065
     Dates: start: 20110408, end: 20110408
  52. TRAMADOL [Concomitant]
     Active Substance: TRAMADOL
     Indication: Product used for unknown indication
     Dosage: 500 MG
     Route: 065
     Dates: start: 20110411, end: 20110413

REACTIONS (7)
  - Neutropenia [Not Recovered/Not Resolved]
  - Abscess [Recovered/Resolved]
  - Folliculitis [Recovered/Resolved]
  - Inflammation [Recovered/Resolved]
  - Constipation [Not Recovered/Not Resolved]
  - Asthenia [Not Recovered/Not Resolved]
  - Gastritis [Not Recovered/Not Resolved]

NARRATIVE: CASE EVENT DATE: 20110208
